FAERS Safety Report 7205846-2 (Version None)
Quarter: 2010Q4

REPORT INFORMATION
  Report Type: 
  Country: None (occurrence: None)
  Receive Date: 20101231
  Receipt Date: 20101220
  Transmission Date: 20110411
  Serious: Yes (Hospitalization, Other)
  Sender: FDA-Public Use
  Company Number: JP-PFIZER INC-2010164727

PATIENT
  Age: 50 Year
  Sex: Female

DRUGS (13)
  1. LIPITOR [Suspect]
     Dosage: 10 MG, 1X/DAY
     Route: 048
     Dates: start: 20101026, end: 20101102
  2. TACROLIMUS [Suspect]
     Indication: RENAL TRANSPLANT
     Dosage: 7 MG, 1X/DAY
     Route: 048
     Dates: start: 20091101
  3. TACROLIMUS [Suspect]
     Indication: RENAL FAILURE CHRONIC
  4. CELLCEPT [Concomitant]
     Dosage: UNK
  5. MEDROL [Concomitant]
     Dosage: UNK
  6. ALFAROL [Concomitant]
     Dosage: UNK
  7. ATELEC [Concomitant]
     Dosage: UNK
  8. FERROUS CITRATE [Concomitant]
     Dosage: UNK
  9. BIOFERMIN [Concomitant]
     Dosage: UNK
  10. NELBON [Concomitant]
     Dosage: UNK
  11. TORASEMIDE [Concomitant]
     Dosage: UNK
  12. TAKEPRON [Concomitant]
     Dosage: UNK
  13. CALONAL [Concomitant]
     Dosage: UNK

REACTIONS (3)
  - BONE MARROW FAILURE [None]
  - MALAISE [None]
  - PANCYTOPENIA [None]
